FAERS Safety Report 7508521-X (Version None)
Quarter: 2011Q2

REPORT INFORMATION
  Report Type: 
  Country: None (occurrence: None)
  Receive Date: 20110518
  Receipt Date: 20110516
  Transmission Date: 20111010
  Serious: Yes (Death)
  Sender: FDA-Public Use
  Company Number: 2011SP022360

PATIENT
  Age: 104 Year
  Sex: Female

DRUGS (1)
  1. NITRO-DUR [Suspect]
     Indication: PRODUCT USED FOR UNKNOWN INDICATION
     Dates: start: 19960101

REACTIONS (1)
  - DEATH [None]
